FAERS Safety Report 19405158 (Version 1)
Quarter: 2021Q2

REPORT INFORMATION
  Report Type: Spontaneous
  Country: US (occurrence: US)
  Receive Date: 20210611
  Receipt Date: 20210611
  Transmission Date: 20210717
  Serious: No
  Sender: FDA-Public Use
  Company Number: US-GLAXOSMITHKLINE-US2021122075

PATIENT
  Age: 72 Year
  Sex: Female

DRUGS (1)
  1. FLONASE ALLERGY RELIEF [Suspect]
     Active Substance: FLUTICASONE PROPIONATE
     Indication: NASAL CONGESTION
     Dosage: 50 UG
     Dates: start: 20210501, end: 20210515

REACTIONS (3)
  - Incorrect dose administered [Unknown]
  - Therapy cessation [Unknown]
  - Product complaint [Unknown]
